FAERS Safety Report 7031203-8 (Version None)
Quarter: 2010Q4

REPORT INFORMATION
  Report Type: 
  Country: None (occurrence: None)
  Receive Date: 20101006
  Receipt Date: 20101001
  Transmission Date: 20110411
  Serious: Yes (Hospitalization)
  Sender: FDA-Public Use
  Company Number: A0655062A

PATIENT
  Age: 46 Year
  Sex: Male
  Weight: 128.2 kg

DRUGS (5)
  1. AVANDIA [Suspect]
     Dosage: 4MG TWICE PER DAY
     Route: 048
     Dates: end: 20070601
  2. AVANDAMET [Suspect]
     Indication: DIABETES MELLITUS
     Route: 048
     Dates: start: 20060101, end: 20070101
  3. VYTORIN [Concomitant]
  4. BYETTA [Concomitant]
  5. INSULIN [Concomitant]

REACTIONS (7)
  - BLINDNESS [None]
  - CARDIAC FAILURE [None]
  - DYSPHONIA [None]
  - ILL-DEFINED DISORDER [None]
  - MACULAR OEDEMA [None]
  - MYOCARDIAL INFARCTION [None]
  - OEDEMA PERIPHERAL [None]
